FAERS Safety Report 5451393-8 (Version None)
Quarter: 2007Q3

REPORT INFORMATION
  Report Type: 
  Country: None (occurrence: None)
  Receive Date: 20070913
  Receipt Date: 20070904
  Transmission Date: 20080115
  Serious: Yes (Hospitalization)
  Sender: FDA-Public Use
  Company Number: A0653922A

PATIENT
  Age: 42 Year
  Sex: Female
  Weight: 58.5 kg

DRUGS (2)
  1. PAZOPANIB [Suspect]
     Dosage: 400MG PER DAY
     Route: 048
     Dates: start: 20070301
  2. LAPATINIB [Suspect]
     Dosage: 1000MG PER DAY
     Route: 048
     Dates: start: 20070301

REACTIONS (3)
  - ANAEMIA [None]
  - HYPOGLYCAEMIA [None]
  - PNEUMONIA [None]
